FAERS Safety Report 13255864 (Version 1)
Quarter: 2017Q1

REPORT INFORMATION
  Report Type: Spontaneous
  Country: CN (occurrence: CN)
  Receive Date: 20170221
  Receipt Date: 20170221
  Transmission Date: 20170428
  Serious: No
  Sender: FDA-Public Use
  Company Number: CN-B. BRAUN MEDICAL INC.-1063368

PATIENT
  Age: 34 Year
  Sex: Female
  Weight: 58 kg

DRUGS (3)
  1. NUTRILIPID I.V. FAT EMULSION [Suspect]
     Active Substance: SOYBEAN OIL
     Indication: NUTRITIONAL SUPPLEMENTATION
     Route: 041
     Dates: start: 20161026, end: 20161026
  2. PROMETHAZINE [Concomitant]
     Active Substance: PROMETHAZINE\PROMETHAZINE HYDROCHLORIDE
     Route: 030
  3. CLARITYNE [Concomitant]
     Active Substance: LORATADINE
     Route: 048

REACTIONS (5)
  - Drug hypersensitivity [None]
  - Infusion related reaction [None]
  - Rash [Recovering/Resolving]
  - Pruritus [Recovering/Resolving]
  - Rash generalised [None]

NARRATIVE: CASE EVENT DATE: 20161026
